FAERS Safety Report 7276611-5 (Version None)
Quarter: 2011Q1

REPORT INFORMATION
  Report Type: 
  Country: None (occurrence: None)
  Receive Date: 20110204
  Receipt Date: 20101217
  Transmission Date: 20110831
  Serious: Yes (Hospitalization)
  Sender: FDA-Public Use
  Company Number: US-BAYER-201027360NA

PATIENT
  Sex: Female
  Weight: 49.091 kg

DRUGS (11)
  1. SYNTHROID [Concomitant]
     Indication: HYPOTHYROIDISM
     Route: 048
     Dates: start: 20010101
  2. YASMIN [Suspect]
     Indication: CONTRACEPTION
     Route: 048
     Dates: start: 20040117, end: 20050128
  3. ADVIL [Concomitant]
     Indication: PAIN
     Route: 048
  4. MOTRIN [Concomitant]
     Indication: PAIN
     Route: 048
  5. ASCORBIC ACID [Concomitant]
     Route: 048
  6. PROVENTIL [Concomitant]
     Indication: ASTHMA
     Route: 055
     Dates: start: 20000101
  7. ADVAIR [Concomitant]
     Indication: PAIN
  8. SEREVENT [Concomitant]
     Indication: PAIN
     Route: 055
     Dates: start: 20000101
  9. VALTREX [Concomitant]
     Indication: DEEP VEIN THROMBOSIS
  10. ALBUTEROL [Concomitant]
     Indication: PULMONARY EMBOLISM
     Route: 055
     Dates: start: 20000101
  11. ACIPHEX [Concomitant]
     Indication: DEEP VEIN THROMBOSIS
     Dates: start: 20010101

REACTIONS (3)
  - PLEURITIC PAIN [None]
  - PULMONARY EMBOLISM [None]
  - DEEP VEIN THROMBOSIS [None]
